FAERS Safety Report 7223487-8 (Version None)
Quarter: 2011Q1

REPORT INFORMATION
  Report Type: 
  Country: None (occurrence: None)
  Receive Date: 20110112
  Receipt Date: 20100729
  Transmission Date: 20110831
  Serious: No
  Sender: FDA-Public Use
  Company Number: US-ALLERGAN-1009909US

PATIENT
  Age: 66 Year
  Sex: Female

DRUGS (4)
  1. RESTASIS [Suspect]
     Indication: CORNEAL DYSTROPHY
     Dosage: 1 GTT, BID
     Route: 047
     Dates: start: 20100203
  2. RESTASIS [Suspect]
     Indication: DRY EYE
  3. SYNTHROID [Concomitant]
     Dosage: 0.75 MG, QD
     Route: 048
  4. RESTASIS [Suspect]
     Indication: BASEDOW'S DISEASE

REACTIONS (1)
  - LACRIMATION INCREASED [None]
